FAERS Safety Report 17465043 (Version 1)
Quarter: 2020Q1

REPORT INFORMATION
  Report Type: Report from Study
  Country: US (occurrence: US)
  Receive Date: 20200226
  Receipt Date: 20200226
  Transmission Date: 20200409
  Serious: Yes (Hospitalization)
  Sender: FDA-Public Use
  Company Number: US-EXELIXIS-XL18420027580

PATIENT
  Age: 74 Year
  Sex: Female
  Weight: 41.9 kg

DRUGS (2)
  1. XL184 [Suspect]
     Active Substance: CABOZANTINIB
     Indication: PLASMA CELL MYELOMA
     Dosage: 20 MG, QD
     Route: 048
     Dates: start: 20200205
  2. CARFILZOMIB [Suspect]
     Active Substance: CARFILZOMIB
     Indication: PLASMA CELL MYELOMA
     Dosage: 27 MG/M2 TWICE WEEKLY
     Route: 042
     Dates: start: 20200205

REACTIONS (2)
  - Respiratory syncytial virus infection [Unknown]
  - Mental status changes [Unknown]

NARRATIVE: CASE EVENT DATE: 20200210
